FAERS Safety Report 12501698 (Version 1)
Quarter: 2016Q2

REPORT INFORMATION
  Report Type: Spontaneous
  Country: US (occurrence: US)
  Receive Date: 20160627
  Receipt Date: 20160627
  Transmission Date: 20160815
  Serious: Yes (Hospitalization)
  Sender: FDA-Public Use
  Company Number: US-SUPERNUS PHARMACEUTICALS, INC.-2016SUP00121

PATIENT
  Age: 37 Year
  Sex: Female

DRUGS (1)
  1. TROKENDI XR [Suspect]
     Active Substance: TOPIRAMATE
     Dosage: UNK UNKNOWN, UNK
     Route: 065

REACTIONS (1)
  - Systemic inflammatory response syndrome [Unknown]

NARRATIVE: CASE EVENT DATE: 20160303
